FAERS Safety Report 5188473-0 (Version None)
Quarter: 2006Q4

REPORT INFORMATION
  Report Type: 
  Country: None (occurrence: None)
  Receive Date: 20061214
  Receipt Date: 20061203
  Transmission Date: 20070319
  Serious: Yes (Other)
  Sender: FDA-Public Use
  Company Number: 2006150465

PATIENT
  Age: 67 Year
  Sex: Male
  Weight: 79.3795 kg

DRUGS (18)
  1. CHANTIX [Suspect]
     Indication: SMOKING CESSATION THERAPY
     Dates: start: 20061122
  2. REGLAN [Concomitant]
  3. XANAX [Concomitant]
  4. AVANDIA [Concomitant]
  5. DEXTROMAPHETAMINE (DEXAMFETAMINE) [Concomitant]
  6. LEVOTHYROXINE SODIUM [Concomitant]
  7. MORPHINE SULFATE [Concomitant]
  8. PAXIL [Concomitant]
  9. PLAVIX [Concomitant]
  10. NEXIUM (ESCOMEPRAZOLE) [Concomitant]
  11. VYTORIN [Concomitant]
  12. ASPIRIN [Concomitant]
  13. FENTANYL [Concomitant]
  14. VITAMIN B (VITAMIN B) [Concomitant]
  15. ALL OTHER THERAPEUTIC PRODUCTS (ALL OTHER THERAPEUTIC PRODUCTS) [Concomitant]
  16. MILK THISTLE (SILYMARIN) [Concomitant]
  17. MUCINEX [Concomitant]
  18. BEE POLLEN (BEE POLLEN) [Concomitant]

REACTIONS (5)
  - ASTHENIA [None]
  - CONDITION AGGRAVATED [None]
  - MALAISE [None]
  - POLLAKIURIA [None]
  - SOMNOLENCE [None]
